FAERS Safety Report 9373509 (Version 1)
Quarter: 2013Q2

REPORT INFORMATION
  Report Type: Spontaneous
  Country: US (occurrence: US)
  Receive Date: 20130627
  Receipt Date: 20130627
  Transmission Date: 20140414
  Serious: No
  Sender: FDA-Public Use
  Company Number: US-009507513-1306USA013721

PATIENT
  Sex: Female

DRUGS (13)
  1. PRILOSEC [Suspect]
     Dosage: 20 MG, BID
     Route: 048
  2. MIRTAZAPINE [Suspect]
     Route: 048
  3. LYRICA [Concomitant]
     Dosage: 150 MG, TID. ONE TABLET BY MOUTH THREE TIMES A DAY
     Route: 048
  4. ATROVENT [Concomitant]
     Indication: CHRONIC RESPIRATORY DISEASE
     Dosage: 2 DF, QID
  5. DOCUSATE SODIUM [Concomitant]
     Dosage: 240 MG, BID
     Route: 048
  6. REGLAN [Concomitant]
     Dosage: 5 MG, TID
     Route: 048
  7. HYDROCHLOROTHIAZIDE [Concomitant]
  8. MORPHINE [Concomitant]
  9. POLYETHYLENE GLYCOL [Concomitant]
  10. ERYTHROMYCIN [Concomitant]
  11. LUNESTA [Concomitant]
     Dosage: 1 BY MOUTH AS NEEDED FOR SLEEP
  12. NORCO [Concomitant]
     Indication: BREAKTHROUGH PAIN
     Dosage: TAKE ONE TABLET BY MOUTH THREE TIMES A DAY
     Route: 048
  13. ROBAXIN [Concomitant]
     Dosage: TAKE 1-2 TABLET BY MOUTH THREE TIMES A DAY
     Route: 048

REACTIONS (20)
  - Chronic obstructive pulmonary disease [Unknown]
  - Vaginitis bacterial [Unknown]
  - Candida infection [Unknown]
  - Vitamin D deficiency [Unknown]
  - Essential hypertension [Unknown]
  - Impaired gastric emptying [Unknown]
  - Spinal osteoarthritis [Unknown]
  - Insomnia [Unknown]
  - Fibromyalgia [Unknown]
  - Hypokalaemia [Unknown]
  - Peptic ulcer [Unknown]
  - Oedema peripheral [Unknown]
  - Periarthritis [Unknown]
  - Ligament rupture [Unknown]
  - Constipation [Unknown]
  - Rotator cuff syndrome [Unknown]
  - Rhinitis allergic [Unknown]
  - Vitamin B12 deficiency [Unknown]
  - Depression [Unknown]
  - Lung neoplasm [Unknown]
